FAERS Safety Report 13549486 (Version 2)
Quarter: 2017Q2

REPORT INFORMATION
  Report Type: Report from Study
  Country: CO (occurrence: CO)
  Receive Date: 20170516
  Receipt Date: 20170522
  Transmission Date: 20170830
  Serious: Yes (Other)
  Sender: FDA-Public Use
  Company Number: CO-ROCHE-1935669

PATIENT
  Sex: Female
  Weight: 65 kg

DRUGS (3)
  1. LUCENTIS [Suspect]
     Active Substance: RANIBIZUMAB
     Route: 065
     Dates: start: 2015, end: 2015
  2. LUCENTIS [Suspect]
     Active Substance: RANIBIZUMAB
     Indication: RETINAL DEGENERATION
     Route: 065
     Dates: start: 20140821
  3. WINADEINE F [Concomitant]
     Indication: PAIN
     Route: 065

REACTIONS (1)
  - Cataract [Unknown]
